FAERS Safety Report 6249387-8 (Version None)
Quarter: 2009Q2

REPORT INFORMATION
  Report Type: 
  Country: None (occurrence: None)
  Receive Date: 20090629
  Receipt Date: 20090619
  Transmission Date: 20091009
  Serious: Yes (Hospitalization)
  Sender: FDA-Public Use
  Company Number: US-BIOGENIDEC-2009BI017764

PATIENT
  Age: 40 Year
  Sex: Female

DRUGS (5)
  1. AVONEX [Suspect]
     Indication: MULTIPLE SCLEROSIS
     Route: 030
     Dates: start: 20090316
  2. TOPRAMAX [Concomitant]
     Indication: DRUG USE FOR UNKNOWN INDICATION
  3. AMITRIPTYLINE HCL [Concomitant]
     Indication: DRUG USE FOR UNKNOWN INDICATION
  4. LYRICA [Concomitant]
     Indication: DRUG USE FOR UNKNOWN INDICATION
  5. CELEXA [Concomitant]
     Indication: DRUG USE FOR UNKNOWN INDICATION

REACTIONS (6)
  - CENTRAL NERVOUS SYSTEM LESION [None]
  - CONVULSION [None]
  - DEPRESSION [None]
  - NERVOUS SYSTEM DISORDER [None]
  - PAIN [None]
  - STRESS [None]
